FAERS Safety Report 20319153 (Version 3)
Quarter: 2022Q1

REPORT INFORMATION
  Report Type: Report from Study
  Country: CA (occurrence: CA)
  Receive Date: 20220110
  Receipt Date: 20220304
  Transmission Date: 20220423
  Serious: Yes (Other)
  Sender: FDA-Public Use
  Company Number: CA-OTSUKA-2022_000349

PATIENT
  Age: 73 Year
  Sex: Female

DRUGS (1)
  1. CEDAZURIDINE\DECITABINE [Suspect]
     Active Substance: CEDAZURIDINE\DECITABINE
     Indication: Myelodysplastic syndrome
     Dosage: 1 DF, QD (DAYS 1 THROUGH 5 EVERY 28 DAYS)
     Route: 048
     Dates: start: 20211206, end: 20220301

REACTIONS (4)
  - Transfusion [Unknown]
  - Lymphadenopathy [Unknown]
  - Therapy interrupted [Unknown]
  - Therapy cessation [Unknown]

NARRATIVE: CASE EVENT DATE: 20211231
